FAERS Safety Report 17064563 (Version 2)
Quarter: 2019Q4

REPORT INFORMATION
  Report Type: Spontaneous
  Country: US (occurrence: US)
  Receive Date: 20191122
  Receipt Date: 20191205
  Transmission Date: 20200122
  Serious: Yes (Death)
  Sender: FDA-Public Use
  Company Number: US-ROCHE-2479212

PATIENT
  Age: 83 Year
  Sex: Female
  Weight: 63.11 kg

DRUGS (30)
  1. HEPARIN [Concomitant]
     Active Substance: HEPARIN SODIUM
     Route: 065
  2. CALCIUM CARBONATE. [Concomitant]
     Active Substance: CALCIUM CARBONATE
  3. PREDNISONE. [Concomitant]
     Active Substance: PREDNISONE
     Route: 048
  4. ZOFRAN [Concomitant]
     Active Substance: ONDANSETRON HYDROCHLORIDE
  5. ACETAMINOPHEN. [Concomitant]
     Active Substance: ACETAMINOPHEN
     Route: 048
  6. ONDANSETRON HCL [Concomitant]
     Active Substance: ONDANSETRON HYDROCHLORIDE
     Route: 048
  7. SOLIFENACIN [Concomitant]
     Active Substance: SOLIFENACIN
     Route: 048
  8. ESBRIET [Suspect]
     Active Substance: PIRFENIDONE
     Indication: IDIOPATHIC PULMONARY FIBROSIS
     Route: 048
     Dates: start: 20161201
  9. LEVOTHYROXINE. [Concomitant]
     Active Substance: LEVOTHYROXINE
  10. ATOVAQUONE. [Concomitant]
     Active Substance: ATOVAQUONE
     Dosage: 750MG/5 ML; 10 ML BY MOUTH DAILY
     Route: 048
  11. IMATINIB. [Concomitant]
     Active Substance: IMATINIB MESYLATE
     Route: 048
  12. SENNA LAXATIVE [Concomitant]
     Active Substance: SENNOSIDES
     Route: 048
  13. FUROSEMIDE. [Concomitant]
     Active Substance: FUROSEMIDE
     Route: 048
  14. PREDNISONE. [Concomitant]
     Active Substance: PREDNISONE
     Route: 048
  15. VANCOMYCIN [Concomitant]
     Active Substance: VANCOMYCIN
  16. CLOTRIMAZOLE. [Concomitant]
     Active Substance: CLOTRIMAZOLE
     Dosage: 1%
     Route: 061
  17. PROLIA [Concomitant]
     Active Substance: DENOSUMAB
     Dosage: SYRINGE 1 ML?60MG/ML ; INJECTION GIVEN TWICE A YEAR
     Route: 058
  18. AMIODARONE [Concomitant]
     Active Substance: AMIODARONE
  19. LEXAPRO [Concomitant]
     Active Substance: ESCITALOPRAM OXALATE
  20. OXYCODONE [Concomitant]
     Active Substance: OXYCODONE
     Route: 048
  21. MEPRON [Concomitant]
     Active Substance: ATOVAQUONE
  22. ESCITALOPRAM [Concomitant]
     Active Substance: ESCITALOPRAM OXALATE
     Route: 048
  23. PANTOPRAZOLE [Concomitant]
     Active Substance: PANTOPRAZOLE
     Route: 048
  24. TYLENOL [Concomitant]
     Active Substance: ACETAMINOPHEN
  25. SIMVASTATIN. [Concomitant]
     Active Substance: SIMVASTATIN
     Dosage: 1 TAB ORAL FOR 90 DAYS
     Route: 048
  26. ASPIRIN [ACETYLSALICYLIC ACID] [Concomitant]
     Active Substance: ASPIRIN
  27. SODIUM CHLORIDE. [Concomitant]
     Active Substance: SODIUM CHLORIDE
     Dosage: 0.65%
     Route: 045
  28. LEVOTHYROXINE. [Concomitant]
     Active Substance: LEVOTHYROXINE
     Dosage: 75 MCG; 1 TAB DAILY FOR 90 DAYS
     Route: 048
  29. NITROGLYCERIN. [Concomitant]
     Active Substance: NITROGLYCERIN
     Route: 060
  30. TRIAMCINOLONE ACETONIDE. [Concomitant]
     Active Substance: TRIAMCINOLONE ACETONIDE
     Dosage: 0.1%
     Route: 061

REACTIONS (12)
  - Coronary artery disease [Fatal]
  - Nasal congestion [Unknown]
  - Chronic myeloid leukaemia [Fatal]
  - Visual impairment [Unknown]
  - Decreased appetite [Unknown]
  - Death [Fatal]
  - Atrial fibrillation [Fatal]
  - Pulmonary hypertension [Fatal]
  - Dyspnoea [Unknown]
  - Dyspepsia [Unknown]
  - Asthenia [Unknown]
  - Myalgia [Unknown]

NARRATIVE: CASE EVENT DATE: 20191112
